FAERS Safety Report 7381295-1 (Version None)
Quarter: 2011Q1

REPORT INFORMATION
  Report Type: 
  Country: None (occurrence: None)
  Receive Date: 20110329
  Receipt Date: 20110228
  Transmission Date: 20110831
  Serious: Yes (Life-Threatening)
  Sender: FDA-Public Use
  Company Number: JP-ASTRAZENECA-2011SE14821

PATIENT
  Age: 60 Year
  Sex: Male

DRUGS (10)
  1. LACTEC-D [Concomitant]
     Dates: start: 20110130, end: 20110203
  2. MEROPEN [Suspect]
     Indication: CHOLANGITIS
     Route: 042
     Dates: start: 20110130, end: 20110202
  3. MEROPEN [Suspect]
     Indication: DISSEMINATED INTRAVASCULAR COAGULATION
     Route: 042
     Dates: start: 20110130, end: 20110202
  4. FOY [Concomitant]
     Indication: DISSEMINATED INTRAVASCULAR COAGULATION
     Dates: start: 20110131, end: 20110207
  5. MEROPEN [Suspect]
     Indication: SEPSIS
     Route: 042
     Dates: start: 20110130, end: 20110202
  6. LACTEC-D [Concomitant]
     Indication: FLUID IMBALANCE
     Dates: start: 20110129, end: 20110129
  7. DOPAMINE HYDROCHLORIDE [Concomitant]
     Dates: start: 20110130, end: 20110202
  8. MEROPEN [Suspect]
     Indication: PYELONEPHRITIS
     Route: 042
     Dates: start: 20110130, end: 20110202
  9. DOPAMINE HYDROCHLORIDE [Concomitant]
     Dates: start: 20110202, end: 20110203
  10. DOPAMINE HYDROCHLORIDE [Concomitant]
     Indication: BLOOD PRESSURE DECREASED
     Dates: start: 20110129, end: 20110129

REACTIONS (1)
  - THROMBOCYTOPENIA [None]
